FAERS Safety Report 22534882 (Version 1)
Quarter: 2023Q2

REPORT INFORMATION
  Report Type: Report from Study
  Country: US (occurrence: US)
  Receive Date: 20230608
  Receipt Date: 20230608
  Transmission Date: 20230722
  Serious: Yes (Hospitalization, Other)
  Sender: FDA-Public Use
  Company Number: US-BAUSCH-BL-2022-021015

PATIENT
  Age: 66 Year
  Sex: Female

DRUGS (1)
  1. SILIQ [Suspect]
     Active Substance: BRODALUMAB
     Indication: Psoriasis
     Route: 058

REACTIONS (5)
  - Psoriasis [Unknown]
  - Disease recurrence [Unknown]
  - Gait disturbance [Unknown]
  - Fall [Unknown]
  - Product use issue [Unknown]
